FAERS Safety Report 17217455 (Version 1)
Quarter: 2019Q4

REPORT INFORMATION
  Report Type: Spontaneous
  Country: US (occurrence: US)
  Receive Date: 20191231
  Receipt Date: 20191231
  Transmission Date: 20200122
  Serious: Yes (Death, Hospitalization, Other)
  Sender: FDA-Public Use
  Company Number: US-AUROBINDO-AUR-APL-2019-106733

PATIENT
  Age: 66 Year
  Sex: Male

DRUGS (1)
  1. TRIMETHOPRIM+SULFAMETHOXAZOLE [Suspect]
     Active Substance: SULFAMETHOXAZOLE\TRIMETHOPRIM
     Indication: URINARY TRACT INFECTION
     Dosage: UNK SINGLE DOSE
     Route: 065

REACTIONS (8)
  - Pyrexia [Unknown]
  - Nikolsky^s sign [Unknown]
  - Epidermal necrosis [Unknown]
  - Peripheral swelling [Unknown]
  - Inflammation [Unknown]
  - Pruritus [Unknown]
  - Toxic epidermal necrolysis [Fatal]
  - Erythema [Unknown]
